FAERS Safety Report 13878163 (Version 1)
Quarter: 2017Q3

REPORT INFORMATION
  Report Type: Spontaneous
  Country: US (occurrence: US)
  Receive Date: 20170817
  Receipt Date: 20170817
  Transmission Date: 20171127
  Serious: No
  Sender: FDA-Public Use
  Company Number: US-ROCHE-735673

PATIENT
  Age: 3 Year
  Sex: Male

DRUGS (1)
  1. RIBAVIRIN. [Suspect]
     Active Substance: RIBAVIRIN
     Indication: PRODUCT USED FOR UNKNOWN INDICATION
     Dosage: FORM: PILL
     Route: 065
     Dates: start: 20101019, end: 20101019

REACTIONS (2)
  - No adverse event [Unknown]
  - Accidental exposure to product by child [Unknown]
